FAERS Safety Report 9681337 (Version 2)
Quarter: 2013Q4

REPORT INFORMATION
  Report Type: Report from Study
  Country: FR (occurrence: FR)
  Receive Date: 20131111
  Receipt Date: 20131111
  Transmission Date: 20140711
  Serious: Yes (Hospitalization, Other)
  Sender: FDA-Public Use
  Company Number: FR-ASTELLAS-2013EU004822

PATIENT
  Age: 75 Year
  Sex: Male

DRUGS (5)
  1. ENZALUTAMIDE [Suspect]
     Indication: PROSTATE CANCER
     Dosage: 160 MG, UID/QD
     Route: 048
     Dates: start: 20130404, end: 20130414
  2. ENZALUTAMIDE [Suspect]
     Dosage: 80 MG, UID/QD
     Route: 048
     Dates: start: 20130513, end: 20131029
  3. ENZALUTAMIDE [Suspect]
     Dosage: 120 MG, UID/QD
     Route: 048
     Dates: start: 20131029
  4. PAROXETINE [Concomitant]
     Indication: DEPRESSION
     Dosage: 20 MG, UNKNOWN/D
     Route: 048
     Dates: start: 2010
  5. CACIT D3 [Concomitant]
     Indication: BONE DISORDER
     Dosage: UNK DF, UNKNOWN/D
     Route: 048
     Dates: start: 2010

REACTIONS (3)
  - Asthenia [Recovered/Resolved]
  - Diarrhoea [Recovered/Resolved]
  - Trifascicular block [Unknown]
